FAERS Safety Report 18308646 (Version 2)
Quarter: 2020Q4

REPORT INFORMATION
  Report Type: Spontaneous
  Country: AR (occurrence: AR)
  Receive Date: 20200924
  Receipt Date: 20201013
  Transmission Date: 20210113
  Serious: Yes (Other)
  Sender: FDA-Public Use
  Company Number: AR-MYLANLABS-2020M1081651

PATIENT
  Age: 51 Year
  Sex: Male

DRUGS (2)
  1. LAPENAX [Suspect]
     Active Substance: CLOZAPINE
     Indication: PRODUCT USED FOR UNKNOWN INDICATION
     Dosage: 250 MILLIGRAM, QD
     Dates: start: 20190717, end: 20200624
  2. DIVALPROEX SODIUM. [Concomitant]
     Active Substance: DIVALPROEX SODIUM
     Dosage: 1 GRAM, QD

REACTIONS (11)
  - High density lipoprotein decreased [Recovering/Resolving]
  - Total cholesterol/HDL ratio increased [Recovering/Resolving]
  - Blood glucose increased [Not Recovered/Not Resolved]
  - Azotaemia [Recovering/Resolving]
  - Blood creatinine increased [Recovering/Resolving]
  - Renal failure [Unknown]
  - Microalbuminuria [Not Recovered/Not Resolved]
  - Glycosylated haemoglobin increased [Recovering/Resolving]
  - Renal cell carcinoma [Unknown]
  - Blood thyroid stimulating hormone increased [Recovering/Resolving]
  - Blood triglycerides increased [Recovered/Resolved]

NARRATIVE: CASE EVENT DATE: 20190809
